FAERS Safety Report 11491997 (Version 1)
Quarter: 2015Q3

REPORT INFORMATION
  Report Type: Spontaneous
  Country: US (occurrence: US)
  Receive Date: 20150910
  Receipt Date: 20150910
  Transmission Date: 20151125
  Serious: No
  Sender: FDA-Public Use
  Company Number: US-TEVA-591678USA

PATIENT
  Age: 90 Year
  Sex: Female
  Weight: 55.84 kg

DRUGS (7)
  1. QVAR [Suspect]
     Active Substance: BECLOMETHASONE DIPROPIONATE
     Indication: LUNG DISORDER
     Route: 055
     Dates: start: 201507
  2. METOPROLOL [Concomitant]
     Active Substance: METOPROLOL
  3. CLOPIDOGREL [Concomitant]
     Active Substance: CLOPIDOGREL BISULFATE
  4. RAMIPRIL. [Concomitant]
     Active Substance: RAMIPRIL
  5. AMIODARONE [Concomitant]
     Active Substance: AMIODARONE
  6. SIMVASTATIN. [Concomitant]
     Active Substance: SIMVASTATIN
  7. THYROXINE [Concomitant]
     Active Substance: LEVOTHYROXINE

REACTIONS (1)
  - Dysphonia [Unknown]

NARRATIVE: CASE EVENT DATE: 201508
